FAERS Safety Report 11328371 (Version 1)
Quarter: 2015Q3

REPORT INFORMATION
  Report Type: Spontaneous
  Country: US (occurrence: US)
  Receive Date: 20150731
  Receipt Date: 20150731
  Transmission Date: 20151125
  Serious: No
  Sender: FDA-Public Use
  Company Number: US-ENDO PHARMACEUTICALS INC.-2015-000323

PATIENT
  Age: 41 Year
  Sex: Female

DRUGS (1)
  1. PROPYLTHIOURACAL TABLETS 50 MG [Suspect]
     Active Substance: PROPYLTHIOURACIL
     Indication: PRODUCT USED FOR UNKNOWN INDICATION
     Route: 065

REACTIONS (2)
  - Drug screen positive [Unknown]
  - Blood alcohol increased [Unknown]
